FAERS Safety Report 7646435-5 (Version None)
Quarter: 2011Q3

REPORT INFORMATION
  Report Type: 
  Country: None (occurrence: None)
  Receive Date: 20110725
  Receipt Date: 20110711
  Transmission Date: 20111222
  Serious: Yes (Death, Hospitalization)
  Sender: FDA-Public Use
  Company Number: 2011SP033952

PATIENT
  Age: 28 Year
  Sex: Female

DRUGS (1)
  1. DESOGESTREL/ETHINYL ESTRADIOL [Suspect]
     Indication: CONTRACEPTION

REACTIONS (8)
  - CARDIO-RESPIRATORY ARREST [None]
  - PULMONARY EMBOLISM [None]
  - MALAISE [None]
  - LUNG INFECTION [None]
  - DEPRESSED LEVEL OF CONSCIOUSNESS [None]
  - KLEBSIELLA INFECTION [None]
  - BRAIN OEDEMA [None]
  - LOSS OF CONSCIOUSNESS [None]
